FAERS Safety Report 7290771-1 (Version None)
Quarter: 2011Q1

REPORT INFORMATION
  Report Type: 
  Country: None (occurrence: None)
  Receive Date: 20110214
  Receipt Date: 20110203
  Transmission Date: 20110831
  Serious: Yes (Disabling)
  Sender: FDA-Public Use
  Company Number: EC-ROCHE-757406

PATIENT
  Sex: Female
  Weight: 107 kg

DRUGS (3)
  1. VITAMINE D [Concomitant]
     Indication: OSTEOPOROSIS
     Route: 048
     Dates: start: 20070101
  2. BONIVA [Concomitant]
     Route: 048
  3. BONIVA [Suspect]
     Indication: OSTEOPOROSIS
     Route: 042
     Dates: start: 20100224

REACTIONS (1)
  - SYNCOPE [None]
